FAERS Safety Report 15541663 (Version 1)
Quarter: 2018Q4

REPORT INFORMATION
  Report Type: Spontaneous
  Country: US (occurrence: US)
  Receive Date: 20181023
  Receipt Date: 20181023
  Transmission Date: 20190205
  Serious: Yes (Disabling, Other)
  Sender: FDA-Public Use
  Company Number: US-JNJFOC-20181027680

PATIENT
  Age: 63 Year
  Sex: Male
  Weight: 105.24 kg

DRUGS (1)
  1. INVOKANA [Suspect]
     Active Substance: CANAGLIFLOZIN
     Indication: TYPE 2 DIABETES MELLITUS
     Route: 048
     Dates: start: 20151005

REACTIONS (3)
  - Localised infection [Unknown]
  - Gangrene [Unknown]
  - Limb amputation [Unknown]

NARRATIVE: CASE EVENT DATE: 201703
